FAERS Safety Report 8303513-5 (Version None)
Quarter: 2012Q2

REPORT INFORMATION
  Report Type: 
  Country: None (occurrence: None)
  Receive Date: 20120418
  Receipt Date: 20110128
  Transmission Date: 20120825
  Serious: No
  Sender: FDA-Public Use
  Company Number: AECAN201100020

PATIENT
  Age: 52 Year
  Sex: Female
  Weight: 81.1939 kg

DRUGS (1)
  1. PROLASTIN-C [Suspect]
     Indication: ALPHA-1 ANTI-TRYPSIN DEFICIENCY
     Dosage: 8 GM;QOW;IV
     Route: 042
     Dates: start: 20101119

REACTIONS (2)
  - URINE ABNORMALITY [None]
  - CHROMATURIA [None]
